FAERS Safety Report 8919488 (Version 1)
Quarter: 2012Q4

REPORT INFORMATION
  Report Type: 
  Country: CA (occurrence: CA)
  Receive Date: 20121121
  Receipt Date: 20121121
  Transmission Date: 20130627
  Serious: Yes (Hospitalization, Other)
  Sender: FDA-Public Use
  Company Number: CA-BAYER-2012-119022

PATIENT
  Age: 44 Year
  Sex: Female

DRUGS (5)
  1. BETASERON [Suspect]
     Indication: MULTIPLE SCLEROSIS
     Dosage: 0.25 mg, TIW
     Dates: start: 20080830
  2. WARFARIN [Concomitant]
  3. VITAMIN B12 [Concomitant]
  4. VITAMIN D [Concomitant]
  5. VENTOLIN [Concomitant]

REACTIONS (2)
  - Nephrolithiasis [Not Recovered/Not Resolved]
  - Localised infection [Not Recovered/Not Resolved]
